FAERS Safety Report 23433462 (Version 1)
Quarter: 2024Q1

REPORT INFORMATION
  Report Type: Spontaneous
  Country: GB (occurrence: GB)
  Receive Date: 20240123
  Receipt Date: 20240123
  Transmission Date: 20240410
  Serious: Yes (Disabling)
  Sender: FDA-Public Use
  Company Number: None

PATIENT
  Age: 72 Year

DRUGS (1)
  1. ARIPIPRAZOLE [Suspect]
     Active Substance: ARIPIPRAZOLE
     Indication: Schizoaffective disorder
     Dosage: 400 MG EVERY 4 WEEKS (DEPOT), DURATION: 124 DAYS
     Route: 065
     Dates: start: 20230818, end: 20231220

REACTIONS (1)
  - Hypersexuality [Recovering/Resolving]

NARRATIVE: CASE EVENT DATE: 20231201
